FAERS Safety Report 10363879 (Version 1)
Quarter: 2014Q3

REPORT INFORMATION
  Report Type: Spontaneous
  Country: ES (occurrence: None)
  Receive Date: 20140801
  Receipt Date: 20140801
  Transmission Date: 20150326
  Serious: Yes (Other)
  Sender: FDA-Public Use
  Company Number: ES-016584

PATIENT
  Age: 35 Year
  Sex: Female

DRUGS (1)
  1. PROPESS (PROPESS) 10 MG (NOT SPECIFIED) [Suspect]
     Active Substance: DINOPROSTONE
     Indication: LABOUR INDUCTION
     Route: 067
     Dates: start: 20140716, end: 20140716

REACTIONS (4)
  - Caesarean section [None]
  - Tachycardia [None]
  - Maternal exposure during delivery [None]
  - Premature separation of placenta [None]

NARRATIVE: CASE EVENT DATE: 20140716
